FAERS Safety Report 18314175 (Version 1)
Quarter: 2020Q3

REPORT INFORMATION
  Report Type: Spontaneous
  Country: TH (occurrence: TH)
  Receive Date: 20200925
  Receipt Date: 20200925
  Transmission Date: 20201103
  Serious: Yes (Other)
  Sender: FDA-Public Use
  Company Number: NVSC2020TH258446

PATIENT
  Age: 68 Year
  Sex: Female

DRUGS (6)
  1. LETROZOLE. [Suspect]
     Active Substance: LETROZOLE
     Indication: BREAST CANCER RECURRENT
     Dosage: UNK
     Route: 065
     Dates: start: 20200805
  2. KISQALI [Suspect]
     Active Substance: RIBOCICLIB
     Indication: BREAST CANCER RECURRENT
     Dosage: UNK
     Route: 065
     Dates: start: 20200805
  3. KISQALI [Suspect]
     Active Substance: RIBOCICLIB
     Dosage: 600 MG (3 TABLETS C1D14)
     Route: 065
     Dates: start: 20200818
  4. LETROZOLE. [Suspect]
     Active Substance: LETROZOLE
     Indication: BREAST CANCER METASTATIC
     Dosage: UNK
     Route: 065
     Dates: start: 202007
  5. KISQALI [Suspect]
     Active Substance: RIBOCICLIB
     Indication: BREAST CANCER METASTATIC
     Dosage: 600 MG (3 TABLETS C1D1)
     Route: 065
     Dates: start: 20200803
  6. KISQALI [Suspect]
     Active Substance: RIBOCICLIB
     Dosage: 400 MG (2 TABLETS C2D1)
     Route: 065
     Dates: start: 20200901

REACTIONS (4)
  - Aspartate aminotransferase increased [Unknown]
  - Neutrophil count decreased [Unknown]
  - Haemoglobin decreased [Unknown]
  - White blood cell count decreased [Unknown]
